FAERS Safety Report 4443273-1 (Version None)
Quarter: 2004Q3

REPORT INFORMATION
  Report Type: 
  Country: None (occurrence: None)
  Receive Date: 20040908
  Receipt Date: 20040826
  Transmission Date: 20050211
  Serious: No
  Sender: FDA-Public Use
  Company Number: PHNR2004AU01371

PATIENT
  Age: 63 Year
  Sex: Male

DRUGS (3)
  1. ZOMETA [Suspect]
     Indication: LUNG NEOPLASM MALIGNANT
     Dosage: 4 MG, QMO
     Dates: start: 20040709
  2. ZOMETA [Suspect]
     Dosage: 4 MG, EVERY 6 WEEKS
  3. PACLITAXEL + CARBOPLATIN [Concomitant]

REACTIONS (2)
  - HYPOCALCAEMIA [None]
  - TETANY [None]
